FAERS Safety Report 13305692 (Version 1)
Quarter: 2017Q1

REPORT INFORMATION
  Report Type: Spontaneous
  Country: US (occurrence: US)
  Receive Date: 20170308
  Receipt Date: 20170308
  Transmission Date: 20170428
  Serious: Yes (Hospitalization)
  Sender: FDA-Public Use
  Company Number: None

PATIENT
  Age: 52 Year
  Sex: Female
  Weight: 79.1 kg

DRUGS (6)
  1. GABAPENTIN. [Concomitant]
     Active Substance: GABAPENTIN
  2. ALPRAZOLAM. [Concomitant]
     Active Substance: ALPRAZOLAM
  3. TAPENTADOLE [Suspect]
     Active Substance: TAPENTADOL
     Indication: BACK PAIN
     Dosage: ?          OTHER FREQUENCY:150 BID, 50 PRN;?
     Route: 048
  4. CARISOPRODOL. [Concomitant]
     Active Substance: CARISOPRODOL
  5. ZOLPIDEM [Concomitant]
     Active Substance: ZOLPIDEM\ZOLPIDEM TARTRATE
  6. BUSPIRONE [Suspect]
     Active Substance: BUSPIRONE HYDROCHLORIDE
     Indication: ANXIETY DISORDER
     Route: 048

REACTIONS (22)
  - Petechiae [None]
  - Fall [None]
  - Vomiting [None]
  - Tachycardia [None]
  - Hyperthermia [None]
  - Fatigue [None]
  - Agitation [None]
  - Diarrhoea [None]
  - Pneumonia [None]
  - Headache [None]
  - Disorientation [None]
  - Meningococcal bacteraemia [None]
  - Mental status changes [None]
  - Rhabdomyolysis [None]
  - Mydriasis [None]
  - Overdose [None]
  - Cat scratch disease [None]
  - Meningitis enteroviral [None]
  - Meningitis meningococcal [None]
  - Lethargy [None]
  - Urinary tract infection [None]
  - Sepsis [None]

NARRATIVE: CASE EVENT DATE: 20170227
